FAERS Safety Report 6377061-6 (Version None)
Quarter: 2009Q3

REPORT INFORMATION
  Report Type: 
  Country: None (occurrence: None)
  Receive Date: 20090925
  Receipt Date: 20090915
  Transmission Date: 20100115
  Serious: Yes (Death)
  Sender: FDA-Public Use
  Company Number: KR-PFIZER INC-2009262169

PATIENT
  Age: 63 Year

DRUGS (5)
  1. VORICONAZOLE [Suspect]
     Indication: ASPERGILLOSIS
     Dosage: 200 MG, 2X/DAY
     Route: 042
     Dates: start: 20080927, end: 20081021
  2. IMIPENEM [Concomitant]
     Indication: PNEUMONIA
     Dosage: 250 MG, 2X/DAY
     Route: 042
     Dates: start: 20080918, end: 20081024
  3. RANITIDINE [Concomitant]
     Indication: GASTRITIS
     Dosage: 50 MG, 3X/DAY
     Route: 042
     Dates: start: 20080904, end: 20081024
  4. VANCOMYCIN [Concomitant]
     Indication: PNEUMONIA
     Dosage: 1 G, 1X/DAY
     Route: 042
     Dates: start: 20080908, end: 20081006
  5. CODEINE [Concomitant]
     Indication: COUGH
     Dosage: 20 MG, 3X/DAY
     Route: 048
     Dates: start: 20080624, end: 20081008

REACTIONS (3)
  - DISEASE PROGRESSION [None]
  - RECTAL CANCER [None]
  - THROMBOCYTOPENIA [None]
